FAERS Safety Report 4302985-0 (Version None)
Quarter: 2004Q1

REPORT INFORMATION
  Report Type: 
  Country: None (occurrence: None)
  Receive Date: 20040224
  Receipt Date: 20031119
  Transmission Date: 20041129
  Serious: Yes (Other)
  Sender: FDA-Public Use
  Company Number: ZA-GLAXOSMITHKLINE-B0315453A

PATIENT
  Age: 60 Year
  Sex: Male
  Weight: 97 kg

DRUGS (2)
  1. ZYBAN [Suspect]
     Indication: EX-SMOKER
     Dosage: 150MG TWICE PER DAY
     Route: 048
     Dates: start: 20030901, end: 20031001
  2. NO CONCURRENT MEDICATION [Concomitant]

REACTIONS (6)
  - ACUTE FEBRILE NEUTROPHILIC DERMATOSIS [None]
  - DERMATITIS [None]
  - HYPERSENSITIVITY [None]
  - ORAL DISCOMFORT [None]
  - RASH ERYTHEMATOUS [None]
  - RASH PAPULAR [None]
